FAERS Safety Report 4590209-9 (Version None)
Quarter: 2005Q1

REPORT INFORMATION
  Report Type: 
  Country: None (occurrence: None)
  Receive Date: 20050217
  Receipt Date: 20050204
  Transmission Date: 20050727
  Serious: Yes (Disabling)
  Sender: FDA-Public Use
  Company Number: HQWYE138507FEB05

PATIENT
  Age: 60 Year
  Sex: Female
  Weight: 54.48 kg

DRUGS (3)
  1. EFFEXOR XR [Suspect]
     Indication: ANXIETY
     Dosage: SEE IMAGE
     Route: 048
     Dates: start: 20000101, end: 20010101
  2. EFFEXOR XR [Suspect]
     Indication: ANXIETY
     Dosage: SEE IMAGE
     Route: 048
     Dates: start: 20010101, end: 20030101
  3. GINSENG (GINSENG) [Concomitant]

REACTIONS (23)
  - ABASIA [None]
  - BEDRIDDEN [None]
  - CHEST PAIN [None]
  - DRUG WITHDRAWAL SYNDROME [None]
  - FAECAL INCONTINENCE [None]
  - FALL [None]
  - FOOD INTERACTION [None]
  - HALLUCINATION, VISUAL [None]
  - HEPATIC ENZYME INCREASED [None]
  - HYPOAESTHESIA [None]
  - IMPAIRED DRIVING ABILITY [None]
  - INSOMNIA [None]
  - LOSS OF CONSCIOUSNESS [None]
  - MYOCARDIAL INFARCTION [None]
  - NERVOUS SYSTEM DISORDER [None]
  - PAIN [None]
  - PARAESTHESIA [None]
  - PAROXYSMAL PERCEPTUAL ALTERATION [None]
  - SERUM SEROTONIN INCREASED [None]
  - SOMNOLENCE [None]
  - TINNITUS [None]
  - URINARY INCONTINENCE [None]
  - WALKING AID USER [None]
